FAERS Safety Report 9496613 (Version 1)
Quarter: 2013Q3

REPORT INFORMATION
  Report Type: Spontaneous
  Country: CH (occurrence: None)
  Receive Date: 20130828
  Receipt Date: 20130828
  Transmission Date: 20140515
  Serious: Yes (Other)
  Sender: FDA-Public Use
  Company Number: 20130454

PATIENT
  Age: 65 Year
  Sex: Female
  Weight: 60 kg

DRUGS (4)
  1. VENOFER [Suspect]
     Dosage: 25MG/200 ML SALINE
     Dates: start: 20130726, end: 20130726
  2. ASPIRIN (ACETYLSALICYLIC ACID) [Concomitant]
  3. LACTULOSE, 10 ML [Concomitant]
  4. LASIX (FUROSEMIDE) 360 MG [Concomitant]

REACTIONS (5)
  - Wrong technique in drug usage process [None]
  - Wrong technique in drug usage process [None]
  - Unresponsive to stimuli [None]
  - Syncope [None]
  - Hypertensive crisis [None]
